FAERS Safety Report 7292423-0 (Version None)
Quarter: 2011Q1

REPORT INFORMATION
  Report Type: 
  Country: None (occurrence: None)
  Receive Date: 20110215
  Receipt Date: 20110210
  Transmission Date: 20110831
  Serious: No
  Sender: FDA-Public Use
  Company Number: US-PFIZER INC-2011031017

PATIENT
  Sex: Male

DRUGS (1)
  1. NEURONTIN [Suspect]
     Dosage: 300 MG, UNK

REACTIONS (6)
  - MALAISE [None]
  - ANXIETY [None]
  - INCORRECT STORAGE OF DRUG [None]
  - INSOMNIA [None]
  - MUSCLE SPASMS [None]
  - DRUG INEFFECTIVE [None]
